FAERS Safety Report 6272189-3 (Version None)
Quarter: 2009Q3

REPORT INFORMATION
  Report Type: 
  Country: None (occurrence: None)
  Receive Date: 20090717
  Receipt Date: 20090709
  Transmission Date: 20100115
  Serious: Yes (Other)
  Sender: FDA-Public Use
  Company Number: GB-BRISTOL-MYERS SQUIBB COMPANY-14701890

PATIENT
  Sex: Female

DRUGS (2)
  1. EFAVIRENZ [Suspect]
     Route: 048
     Dates: start: 20071023
  2. KIVEXA [Concomitant]
     Dates: start: 20071023

REACTIONS (2)
  - ABORTION INDUCED [None]
  - PREGNANCY [None]
